FAERS Safety Report 9358420 (Version 1)
Quarter: 2013Q2

REPORT INFORMATION
  Report Type: Spontaneous
  Country: US (occurrence: US)
  Receive Date: 20130620
  Receipt Date: 20130620
  Transmission Date: 20140414
  Serious: No
  Sender: FDA-Public Use
  Company Number: US-PFIZER INC-2013183994

PATIENT
  Age: 81 Year
  Sex: Female
  Weight: 54.42 kg

DRUGS (5)
  1. LYRICA [Suspect]
     Indication: ARTHRALGIA
     Dosage: 25 MG, 3X/DAY
  2. LYRICA [Interacting]
     Indication: FIBROMYALGIA
  3. LYRICA [Interacting]
     Indication: SWELLING
  4. DEPAKOTE [Interacting]
     Indication: CONVULSION
     Dosage: UNK
  5. DEPACON [Suspect]
     Dosage: UNK

REACTIONS (2)
  - Drug interaction [Unknown]
  - Headache [Unknown]
